FAERS Safety Report 5356116-9 (Version None)
Quarter: 2007Q2

REPORT INFORMATION
  Report Type: 
  Country: None (occurrence: None)
  Receive Date: 20070613
  Receipt Date: 20070410
  Transmission Date: 20071010
  Serious: Yes (Hospitalization, Other)
  Sender: FDA-Public Use
  Company Number: US-PFIZER INC-2006109509

PATIENT
  Sex: Female

DRUGS (2)
  1. BEXTRA [Suspect]
     Indication: ARTHRITIS
  2. VIOXX [Suspect]
     Route: 048
     Dates: start: 19990728

REACTIONS (2)
  - EYE DISORDER [None]
  - PULMONARY EMBOLISM [None]
